FAERS Safety Report 8481630 (Version 2)
Quarter: 2012Q4

REPORT INFORMATION
  Report Type: 
  Country: US (occurrence: US)
  Receive Date: 20120329
  Receipt Date: 20121116
  Transmission Date: 20130627
  Serious: Yes (Hospitalization, Other)
  Sender: FDA-Public Use
  Company Number: US-ELI_LILLY_AND_COMPANY-US201202001888

PATIENT
  Sex: Male
  Weight: 65.76 kg

DRUGS (5)
  1. FORTEO [Suspect]
     Indication: OSTEOPOROSIS
     Dosage: 20 ug, qd
     Route: 058
  2. FORTEO [Suspect]
     Dosage: 20 ug, qd
     Route: 058
     Dates: end: 20120101
  3. FORTEO [Suspect]
     Dosage: 20 ug, qd
     Route: 058
     Dates: start: 20120222
  4. FORTEO [Suspect]
     Dosage: 20 ug, qd
     Route: 058
  5. COUMADIN [Concomitant]

REACTIONS (4)
  - Pneumonia [Recovered/Resolved]
  - Empyema [Recovered/Resolved]
  - Surgery [Unknown]
  - Overdose [Unknown]
